FAERS Safety Report 9222257 (Version 2)
Quarter: 2013Q2

REPORT INFORMATION
  Report Type: Report from Study
  Country: US (occurrence: US)
  Receive Date: 20130410
  Receipt Date: 20130425
  Transmission Date: 20140414
  Serious: Yes (Death)
  Sender: FDA-Public Use
  Company Number: PHEH2013US007969

PATIENT
  Sex: Male

DRUGS (1)
  1. TOBI [Suspect]
     Indication: INFECTIVE PULMONARY EXACERBATION OF CYSTIC FIBROSIS
     Dosage: UNK UKN, BID

REACTIONS (2)
  - Pneumonia [Fatal]
  - Cystic fibrosis [Fatal]
